FAERS Safety Report 12426475 (Version 1)
Quarter: 2016Q2

REPORT INFORMATION
  Report Type: Spontaneous
  Country: AU (occurrence: AU)
  Receive Date: 20160601
  Receipt Date: 20160601
  Transmission Date: 20160815
  Serious: Yes (Other)
  Sender: FDA-Public Use
  Company Number: AU-009507513-1605AUS013435

PATIENT
  Sex: Female

DRUGS (1)
  1. IMPLANON [Suspect]
     Active Substance: ETONOGESTREL
     Dosage: UNK

REACTIONS (3)
  - Device dislocation [Not Recovered/Not Resolved]
  - Device deployment issue [Not Recovered/Not Resolved]
  - Device difficult to use [Not Recovered/Not Resolved]
